FAERS Safety Report 5102224-7 (Version None)
Quarter: 2006Q3

REPORT INFORMATION
  Report Type: 
  Country: None (occurrence: None)
  Receive Date: 20060908
  Receipt Date: 20060825
  Transmission Date: 20061208
  Serious: Yes (Hospitalization, Other)
  Sender: FDA-Public Use
  Company Number: US200606000056

PATIENT
  Age: 72 Year
  Sex: Male

DRUGS (2)
  1. CYMBALTA [Suspect]
     Dosage: 30 MG
     Dates: start: 20060525, end: 20060527
  2. AMOXICILLIN [Concomitant]

REACTIONS (7)
  - COLITIS [None]
  - HEPATIC FUNCTION ABNORMAL [None]
  - HEPATITIS [None]
  - LIPASE INCREASED [None]
  - PAIN [None]
  - PROTHROMBIN TIME PROLONGED [None]
  - VITAMIN B12 INCREASED [None]
